FAERS Safety Report 11474559 (Version 1)
Quarter: 2015Q3

REPORT INFORMATION
  Report Type: Report from Study
  Country: FR (occurrence: FR)
  Receive Date: 20150908
  Receipt Date: 20150908
  Transmission Date: 20151125
  Serious: No
  Sender: FDA-Public Use
  Company Number: FR-JAZZ-2014-FR-004569

PATIENT
  Age: 33 Year
  Sex: Female
  Weight: 60 kg

DRUGS (8)
  1. XYREM [Suspect]
     Active Substance: SODIUM OXYBATE
     Indication: NARCOLEPSY
     Dosage: 2.25 G, BID
     Route: 048
     Dates: start: 20140222, end: 20140228
  2. XYREM [Suspect]
     Active Substance: SODIUM OXYBATE
     Indication: CATAPLEXY
     Dosage: 3 G, BID
     Route: 048
     Dates: start: 20140301, end: 20140314
  3. XYREM [Suspect]
     Active Substance: SODIUM OXYBATE
     Dosage: 4.5 G, BID
     Route: 048
     Dates: start: 20140315, end: 2014
  4. MODIODAL [Concomitant]
     Active Substance: MODAFINIL
     Indication: CATAPLEXY
  5. SEROPLEX [Concomitant]
     Active Substance: ESCITALOPRAM OXALATE
     Indication: CATAPLEXY
  6. XYREM [Suspect]
     Active Substance: SODIUM OXYBATE
     Dosage: 4.5 G, BID
     Route: 048
     Dates: start: 20140717, end: 20140908
  7. MODIODAL [Concomitant]
     Active Substance: MODAFINIL
     Indication: NARCOLEPSY
     Dosage: 4 DF, QD
     Route: 048
  8. SEROPLEX [Concomitant]
     Active Substance: ESCITALOPRAM OXALATE
     Indication: NARCOLEPSY
     Dosage: 10 MG, QD
     Route: 048

REACTIONS (12)
  - Weight increased [Unknown]
  - Nausea [Unknown]
  - Somnambulism [Recovered/Resolved]
  - Palpitations [Unknown]
  - Headache [Unknown]
  - Bruxism [Unknown]
  - Sense of oppression [Not Recovered/Not Resolved]
  - Fatigue [Unknown]
  - Drug ineffective [Unknown]
  - Vertigo [Not Recovered/Not Resolved]
  - Sleep-related eating disorder [Recovered/Resolved]
  - Gastroenteritis [Unknown]

NARRATIVE: CASE EVENT DATE: 2014
